FAERS Safety Report 7352354-4 (Version None)
Quarter: 2011Q1

REPORT INFORMATION
  Report Type: 
  Country: None (occurrence: None)
  Receive Date: 20110315
  Receipt Date: 20100927
  Transmission Date: 20110831
  Serious: Yes (Hospitalization, Other)
  Sender: FDA-Public Use
  Company Number: US-BAYER-201013979NA

PATIENT
  Sex: Female
  Weight: 111 kg

DRUGS (13)
  1. UNKNOWN DRUG [Concomitant]
     Indication: ATTENTION DEFICIT/HYPERACTIVITY DISORDER
  2. XANAX [Concomitant]
     Indication: ANXIETY
  3. LAMICTAL [Concomitant]
  4. ZYPREXA [Concomitant]
  5. CENTRAMINA [Concomitant]
  6. STRATTERA [Concomitant]
  7. PHENTERMINE [Concomitant]
  8. NAPROSYN [Concomitant]
     Dosage: UNK
     Dates: start: 20080304
  9. GEODON [Concomitant]
  10. YAZ [Suspect]
     Indication: PREMENSTRUAL SYNDROME
  11. EFFEXOR [Concomitant]
  12. TOPAMAX [Concomitant]
  13. ULTRAM [Concomitant]
     Dosage: UNK
     Dates: start: 20080304

REACTIONS (3)
  - THROMBOPHLEBITIS SUPERFICIAL [None]
  - PULMONARY THROMBOSIS [None]
  - PULMONARY EMBOLISM [None]
